FAERS Safety Report 6573767-4 (Version None)
Quarter: 2010Q1

REPORT INFORMATION
  Report Type: 
  Country: None (occurrence: None)
  Receive Date: 20100208
  Receipt Date: 20100202
  Transmission Date: 20100710
  Serious: Yes (Other)
  Sender: FDA-Public Use
  Company Number: B0631774A

PATIENT
  Age: 2 Year
  Sex: Male

DRUGS (1)
  1. VENTOLIN [Suspect]
     Indication: BRONCHIAL HYPERREACTIVITY
     Dates: start: 20100118, end: 20100129

REACTIONS (1)
  - RASH ERYTHEMATOUS [None]
